FAERS Safety Report 8322620-4 (Version None)
Quarter: 2012Q2

REPORT INFORMATION
  Report Type: 
  Country: None (occurrence: None)
  Receive Date: 20120430
  Receipt Date: 20120426
  Transmission Date: 20120825
  Serious: Yes (Hospitalization, Other)
  Sender: FDA-Public Use
  Company Number: JP-PFIZER INC-2011103992

PATIENT
  Age: 36 Year
  Sex: Female

DRUGS (10)
  1. ZOLOFT [Suspect]
     Indication: PANIC DISORDER
     Dosage: UNK
     Route: 048
     Dates: start: 20110427, end: 20110510
  2. LORAZEPAM [Concomitant]
     Indication: ANXIOLYTIC THERAPY
     Dosage: 0.5 MG, 2X/DAY
     Dates: start: 20110427
  3. GLEEVEC [Suspect]
     Indication: LEUKAEMIA
     Dosage: 600 MG, 1X/DAY
     Dates: start: 20110427, end: 20110509
  4. ZOLOFT [Suspect]
     Dosage: 50 MG, 1X/DAY
     Route: 048
     Dates: start: 20110514, end: 20110528
  5. MILMAG [Concomitant]
     Dosage: 20 ML, 3X/DAY
     Dates: start: 20110427
  6. ZOLOFT [Suspect]
     Dosage: 50 MG, 2X/DAY
     Route: 048
     Dates: start: 20110511, end: 20110513
  7. ITRACONAZOLE [Concomitant]
     Indication: ANTIFUNGAL TREATMENT
     Dosage: 200 MG, 1X/DAY
     Dates: start: 20110427
  8. GLUCONSAN K [Concomitant]
     Indication: ELECTROLYTE SUBSTITUTION THERAPY
     Dosage: 1 G, 3X/DAY
     Dates: start: 20110427
  9. COTRIM [Concomitant]
     Indication: ANTIFUNGAL TREATMENT
     Dosage: 1 DF, 1X/DAY
     Dates: start: 20110427
  10. MONILAC [Concomitant]
     Indication: DYSPEPSIA
     Dosage: 10 ML, 3X/DAY
     Dates: start: 20110427

REACTIONS (3)
  - ACUTE BIPHENOTYPIC LEUKAEMIA [None]
  - GASTROINTESTINAL HAEMORRHAGE [None]
  - GASTRIC ULCER HAEMORRHAGE [None]
